FAERS Safety Report 8168729-X (Version None)
Quarter: 2012Q1

REPORT INFORMATION
  Report Type: 
  Country: None (occurrence: None)
  Receive Date: 20120103
  Receipt Date: 20111114
  Transmission Date: 20120608
  Serious: No
  Sender: FDA-Public Use
  Company Number: AE-2011-003456

PATIENT
  Age: 59 Year
  Sex: Male
  Weight: 90.7194 kg

DRUGS (7)
  1. KLONOPIN [Concomitant]
  2. NETHADONE (METHADONE) [Concomitant]
  3. INCIVEK [Suspect]
     Dosage: 2250 MG (750 MG,1 IN 8 HR),ORAL
     Route: 048
     Dates: start: 20111012
  4. PEGINTERFERON (PEGINTERFERON ALFA-2A) [Concomitant]
  5. RIBAVIRIN [Concomitant]
  6. SPIRONOLACTONE [Concomitant]
  7. LASIX [Concomitant]

REACTIONS (3)
  - WEIGHT INCREASED [None]
  - HYPOAESTHESIA [None]
  - NAUSEA [None]
